FAERS Safety Report 8963611 (Version 1)
Quarter: 2012Q4

REPORT INFORMATION
  Report Type: 
  Country: ES (occurrence: ES)
  Receive Date: 20121214
  Receipt Date: 20121214
  Transmission Date: 20130627
  Serious: Yes (Other)
  Sender: FDA-Public Use
  Company Number: ES-ELI_LILLY_AND_COMPANY-ES201206003019

PATIENT
  Sex: Female

DRUGS (2)
  1. FORSTEO [Suspect]
     Dosage: UNK, unknown
     Dates: start: 20110519
  2. FORSTEO [Suspect]
     Dosage: UNK, unknown

REACTIONS (1)
  - Uterine prolapse [Unknown]
